FAERS Safety Report 12225854 (Version 1)
Quarter: 2016Q1

REPORT INFORMATION
  Report Type: Spontaneous
  Country: US (occurrence: None)
  Receive Date: 20160330
  Receipt Date: 20160330
  Transmission Date: 20160526
  Serious: Yes (Hospitalization, Disabling)
  Sender: FDA-Public Use
  Company Number: None

PATIENT
  Age: 31 Year
  Sex: Female
  Weight: 70.31 kg

DRUGS (2)
  1. PARAGARD T 380A [Suspect]
     Active Substance: COPPER
     Indication: CONTRACEPTION
  2. WOMEN^S ^ONE A DAY^ MULTIVITAMIN [Concomitant]

REACTIONS (5)
  - General physical health deterioration [None]
  - Hypertension [None]
  - Palpitations [None]
  - Cardiovascular disorder [None]
  - Cardiac murmur [None]
